FAERS Safety Report 4587935-4 (Version None)
Quarter: 2005Q1

REPORT INFORMATION
  Report Type: 
  Country: None (occurrence: None)
  Receive Date: 20050215
  Receipt Date: 20050131
  Transmission Date: 20050727
  Serious: Yes (Other)
  Sender: FDA-Public Use
  Company Number: 2005023682

PATIENT
  Age: 59 Year
  Sex: Female

DRUGS (1)
  1. BEXTRA [Suspect]
     Indication: ILL-DEFINED DISORDER
     Dates: end: 20041001

REACTIONS (3)
  - CEREBRAL HAEMORRHAGE [None]
  - MYALGIA [None]
  - PAIN [None]
